FAERS Safety Report 7778992-2 (Version None)
Quarter: 2011Q3

REPORT INFORMATION
  Report Type: 
  Country: None (occurrence: None)
  Receive Date: 20110926
  Receipt Date: 20110920
  Transmission Date: 20111222
  Serious: Yes (Death, Hospitalization, Other)
  Sender: FDA-Public Use
  Company Number: FR-CELGENEUS-056-21880-11092560

PATIENT
  Sex: Female

DRUGS (12)
  1. BACTRIM DS [Concomitant]
     Dosage: 1 TABLET
     Route: 065
  2. NEODEX [Concomitant]
     Dosage: 40 MILLIGRAM
     Route: 048
     Dates: start: 20110624, end: 20110716
  3. REPAGLINIDE [Concomitant]
     Dosage: 1.5 MILLIGRAM
     Route: 065
  4. SOTALOL HCL [Concomitant]
     Dosage: 80 MILLIGRAM
     Route: 065
  5. NEXIUM [Concomitant]
     Dosage: 20 MILLIGRAM
     Route: 065
  6. BICARBONATE [Concomitant]
     Dosage: 3000 MILLIGRAM
     Route: 065
  7. NEODEX [Concomitant]
     Dosage: 40 MILLIGRAM
     Route: 048
     Dates: start: 20110101
  8. ASPIRIN [Concomitant]
     Dosage: 75 MILLIGRAM
     Route: 065
  9. REVLIMID [Suspect]
     Dosage: 10 MILLIGRAM
     Route: 048
     Dates: start: 20110101
  10. COZAAR [Concomitant]
     Dosage: 25 MILLIGRAM
     Route: 065
  11. KAYEXALATE [Concomitant]
     Dosage: .5 TEASPOON
     Route: 065
  12. REVLIMID [Suspect]
     Dosage: 10 MILLIGRAM
     Route: 048
     Dates: start: 20110624, end: 20110716

REACTIONS (2)
  - LUNG DISORDER [None]
  - RESPIRATORY DISTRESS [None]
